FAERS Safety Report 7996782-2 (Version None)
Quarter: 2011Q4

REPORT INFORMATION
  Report Type: 
  Country: None (occurrence: None)
  Receive Date: 20111221
  Receipt Date: 20111212
  Transmission Date: 20120403
  Serious: Yes (Other)
  Sender: FDA-Public Use
  Company Number: US-JNJFOC-20111112551

PATIENT
  Sex: Male
  Weight: 108.86 kg

DRUGS (4)
  1. TRANEXAMIC ACID [Concomitant]
     Indication: SURGERY
  2. LOVENOX [Concomitant]
  3. XARELTO [Suspect]
     Indication: THROMBOSIS PROPHYLAXIS
     Route: 048
     Dates: start: 20111121, end: 20111123
  4. XARELTO [Suspect]
     Indication: ORTHOPEDIC PROCEDURE
     Route: 048
     Dates: start: 20111121, end: 20111123

REACTIONS (1)
  - HAEMOGLOBIN DECREASED [None]
